FAERS Safety Report 9631023 (Version 1)
Quarter: 2013Q4

REPORT INFORMATION
  Report Type: Spontaneous
  Country: FR (occurrence: FR)
  Receive Date: 20131018
  Receipt Date: 20131018
  Transmission Date: 20140711
  Serious: Yes (Hospitalization)
  Sender: FDA-Public Use
  Company Number: PHHY2013FR115238

PATIENT
  Age: 75 Year
  Sex: Male

DRUGS (6)
  1. TASIGNA [Suspect]
     Indication: CHRONIC MYELOID LEUKAEMIA
     Dosage: 400 MG, BID
     Route: 048
     Dates: start: 20120301, end: 20120510
  2. TASIGNA [Suspect]
     Dosage: 300 MG, BID
     Route: 048
     Dates: start: 20120511, end: 20130530
  3. BISOPROLOL [Suspect]
     Indication: ATRIAL FIBRILLATION
     Dosage: 5 MG, QD
     Route: 048
     Dates: start: 20121023
  4. LEVOTHYROXINE SODIUM [Suspect]
     Dosage: 0.1 MG, QD
     Dates: start: 199112
  5. PRADAXA [Suspect]
     Dosage: 75 MG, BID
     Route: 048
     Dates: start: 20121023, end: 20130626
  6. LASILIX [Suspect]
     Indication: BLOOD PRESSURE INCREASED
     Dosage: 20 MG, QD
     Route: 048
     Dates: start: 20121123, end: 20130629

REACTIONS (5)
  - Atrial fibrillation [Not Recovered/Not Resolved]
  - Arterial disorder [Not Recovered/Not Resolved]
  - Arterial thrombosis [Unknown]
  - Renal artery occlusion [Recovered/Resolved with Sequelae]
  - Pulmonary hypertension [Recovered/Resolved]
